FAERS Safety Report 19820636 (Version 1)
Quarter: 2021Q3

REPORT INFORMATION
  Report Type: Spontaneous
  Country: JP (occurrence: JP)
  Receive Date: 20210913
  Receipt Date: 20210913
  Transmission Date: 20211014
  Serious: Yes (Other)
  Sender: FDA-Public Use
  Company Number: JP-ROCHE-2909053

PATIENT

DRUGS (4)
  1. BROMAZEPAM [Suspect]
     Active Substance: BROMAZEPAM
     Indication: PRODUCT USED FOR UNKNOWN INDICATION
     Route: 048
  2. MEILAX [Suspect]
     Active Substance: ETHYL LOFLAZEPATE
     Indication: PRODUCT USED FOR UNKNOWN INDICATION
     Dosage: DOSE INCREASED
     Route: 048
  3. DEPAS [ETIZOLAM] [Concomitant]
     Active Substance: ETIZOLAM
  4. CLONAZEPAM. [Suspect]
     Active Substance: CLONAZEPAM
     Indication: PRODUCT USED FOR UNKNOWN INDICATION
     Dosage: 3X0.5 MG, 0.5 MG WAS TAKEN A HALF TABLET 3 TIMES/DAY, AND I WAS SAID THAT THE DRUG CAN BE TAKEN UP T
     Route: 048

REACTIONS (6)
  - Drug abuse [Unknown]
  - Intentional overdose [Unknown]
  - Fall [Unknown]
  - Withdrawal syndrome [Unknown]
  - Movement disorder [Unknown]
  - Stupor [Unknown]
